FAERS Safety Report 6199840-0 (Version None)
Quarter: 2009Q2

REPORT INFORMATION
  Report Type: 
  Country: None (occurrence: None)
  Receive Date: 20090520
  Receipt Date: 20090520
  Transmission Date: 20091009
  Serious: Yes (Hospitalization)
  Sender: FDA-Public Use
  Company Number: None

PATIENT
  Age: 53 Year
  Sex: Male

DRUGS (1)
  1. ACETAMINOPHEN [Suspect]
     Dosage: MG OTHER PO
     Route: 048
     Dates: start: 20090505, end: 20090506

REACTIONS (3)
  - ALCOHOL USE [None]
  - INCORRECT DOSE ADMINISTERED [None]
  - TRANSAMINASES INCREASED [None]
